FAERS Safety Report 5670080-4 (Version None)
Quarter: 2008Q1

REPORT INFORMATION
  Report Type: 
  Country: None (occurrence: None)
  Receive Date: 20080312
  Receipt Date: 20080225
  Transmission Date: 20080703
  Serious: Yes (Hospitalization)
  Sender: FDA-Public Use
  Company Number: 230013J08BRA

PATIENT
  Age: 37 Year
  Sex: Female

DRUGS (1)
  1. REBIF [Suspect]
     Dosage: 44 MCG, 3 IN 1 WEEKS
     Dates: start: 20070829

REACTIONS (5)
  - ASTHENIA [None]
  - BACK PAIN [None]
  - FATIGUE [None]
  - MIGRAINE [None]
  - PAIN IN EXTREMITY [None]
